FAERS Safety Report 14275633 (Version 1)
Quarter: 2017Q4

REPORT INFORMATION
  Report Type: Spontaneous
  Country: US (occurrence: US)
  Receive Date: 20171212
  Receipt Date: 20171212
  Transmission Date: 20180321
  Serious: No
  Sender: FDA-Public Use
  Company Number: US-TEVA-627052USA

PATIENT
  Sex: Female
  Weight: 71.28 kg

DRUGS (1)
  1. DILTIAZEM. [Suspect]
     Active Substance: DILTIAZEM
     Route: 065

REACTIONS (3)
  - Joint swelling [Unknown]
  - Heart rate irregular [Unknown]
  - Dyspnoea [Unknown]
